FAERS Safety Report 7040328-2 (Version None)
Quarter: 2010Q4

REPORT INFORMATION
  Report Type: 
  Country: None (occurrence: None)
  Receive Date: 20101012
  Receipt Date: 20100930
  Transmission Date: 20110411
  Serious: Yes (Other)
  Sender: FDA-Public Use
  Company Number: US-PFIZER INC-2010125025

PATIENT
  Sex: Female
  Weight: 108.84 kg

DRUGS (9)
  1. LYRICA [Suspect]
     Indication: NEURALGIA
     Dosage: UNK, 2X DAILY
     Dates: start: 20100601
  2. LYRICA [Suspect]
     Dosage: 250 MG, 2X/DAY
     Route: 048
     Dates: start: 20100101
  3. ZETIA [Concomitant]
     Indication: BLOOD CHOLESTEROL INCREASED
     Dosage: 10 MG, DAILY
  4. ZETIA [Concomitant]
     Indication: BLOOD TRIGLYCERIDES INCREASED
  5. ELAVIL [Concomitant]
     Dosage: 25 MG, DAILY
  6. PROPRANOLOL [Concomitant]
     Dosage: 40 MG, 4X/DAY
  7. AVANDIA [Concomitant]
     Dosage: 145 MG, UNK
  8. TOPAMAX [Concomitant]
     Dosage: 100 MG, 2X/DAY
  9. CELEXA [Concomitant]
     Dosage: 20 MG, DAILY

REACTIONS (4)
  - DRY MOUTH [None]
  - DYSKINESIA [None]
  - PAIN IN EXTREMITY [None]
  - TREMOR [None]
